FAERS Safety Report 12335714 (Version 3)
Quarter: 2016Q2

REPORT INFORMATION
  Report Type: Spontaneous
  Country: IT (occurrence: IT)
  Receive Date: 20160505
  Receipt Date: 20160524
  Transmission Date: 20160815
  Serious: Yes (Hospitalization)
  Sender: FDA-Public Use
  Company Number: IT-ASTRAZENECA-2016SE47920

PATIENT
  Age: 22148 Day
  Sex: Female

DRUGS (2)
  1. LORANS [Suspect]
     Active Substance: LORAZEPAM
     Indication: DRUG ABUSE
     Dosage: 2MG/ML ORAL DROPS, SOLUTION, 10 ML, TOTAL
     Route: 048
     Dates: start: 20160428, end: 20160428
  2. SEROQUEL [Suspect]
     Active Substance: QUETIAPINE FUMARATE
     Indication: DRUG ABUSE
     Route: 048
     Dates: start: 20160428, end: 20160428

REACTIONS (6)
  - Drug abuse [Recovering/Resolving]
  - Suicide attempt [Recovering/Resolving]
  - Anhedonia [Unknown]
  - Drug withdrawal syndrome [Unknown]
  - Sopor [Recovering/Resolving]
  - Apathy [Unknown]

NARRATIVE: CASE EVENT DATE: 20160428
